FAERS Safety Report 7810771-X (Version None)
Quarter: 2011Q4

REPORT INFORMATION
  Report Type: 
  Country: None (occurrence: None)
  Receive Date: 20111011
  Receipt Date: 20110927
  Transmission Date: 20120403
  Serious: Yes (Hospitalization)
  Sender: FDA-Public Use
  Company Number: 1000024417

PATIENT
  Age: 77 Year
  Sex: Male

DRUGS (10)
  1. NEGY (EZETIMIBE, SIMVASTATIN) (TABLETS) (EZETIMIBE, SIMVASTATIN) [Concomitant]
  2. FOSAMAX (ALENDRONATE SODIUM) (TABLETS) (ALENDRONATE SODIUM) [Concomitant]
  3. NEBIVOLOL HCL [Suspect]
     Indication: MYOCARDIAL INFARCTION
     Dosage: 5 MG (5 MG,1 IN 1 D),ORAL
     Route: 048
     Dates: start: 20110401, end: 20110905
  4. COVERSYL (PERINDOPRIL ARGININE) (TABLETS) [Suspect]
     Indication: HYPERTENSION
     Dosage: 5 MG (5 MG,1 IN 1 D),ORAL
     Route: 048
     Dates: start: 20100401, end: 20110906
  5. SEROPLEX (ESCITALOPRAM OXALATE) (TABLETS) (ESCITALOPRAM OXALATE) [Concomitant]
  6. DAFALGAN (PARACETAMOL) (TABLETS) (PARACETAMOL) [Concomitant]
  7. COVERSYL (PERINDOPRIL ARGININE) (TABLETS) [Suspect]
     Indication: HYPERTENSION
     Dosage: 2.5 MG (2.5 MG,1 IN 1 D),ORAL
     Route: 048
     Dates: start: 20110101
  8. KARDEGIC (ACETYLSALICYLATE LYSINE) (TABLETS) (ACETYLSALICYLATE LYSINE) [Concomitant]
  9. CACIT VITAMINE D3 (CALCIUM CARBONATE, CHOLECALCIFEROL) (CALCIUM CARBON [Concomitant]
  10. NEBIVOLOL HCL [Suspect]
     Indication: MYOCARDIAL INFARCTION
     Dosage: 2.5 MG (2.5 MG,1 IN 1 D),ORAL
     Route: 048
     Dates: start: 20110101

REACTIONS (7)
  - ORTHOSTATIC HYPOTENSION [None]
  - HYPOAESTHESIA [None]
  - SYNCOPE [None]
  - SINUS BRADYCARDIA [None]
  - BUNDLE BRANCH BLOCK LEFT [None]
  - FALL [None]
  - BUNDLE BRANCH BLOCK RIGHT [None]
